FAERS Safety Report 9838215 (Version 2)
Quarter: 2014Q1

REPORT INFORMATION
  Report Type: Report from Study
  Country: US (occurrence: US)
  Receive Date: 20140123
  Receipt Date: 20140304
  Transmission Date: 20141002
  Serious: Yes (Hospitalization)
  Sender: FDA-Public Use
  Company Number: PHEH2014US001531

PATIENT
  Age: 50 Year
  Sex: Female
  Weight: 69.85 kg

DRUGS (1)
  1. TOBI [Suspect]
     Indication: CYSTIC FIBROSIS
     Dosage: 300/5 MG/ML BID
     Route: 055

REACTIONS (2)
  - Pseudomonas infection [Unknown]
  - Staphylococcal infection [Unknown]
